FAERS Safety Report 6385872-6 (Version None)
Quarter: 2009Q4

REPORT INFORMATION
  Report Type: 
  Country: None (occurrence: None)
  Receive Date: 20091002
  Receipt Date: 20090928
  Transmission Date: 20100525
  Serious: Yes (Other)
  Sender: FDA-Public Use
  Company Number: JP-BAYER-200913585BYL

PATIENT
  Age: 80 Year
  Sex: Female
  Weight: 55 kg

DRUGS (2)
  1. NEXAVAR [Suspect]
     Indication: HEPATIC NEOPLASM MALIGNANT
     Dosage: UNIT DOSE: 200 MG
     Route: 048
     Dates: start: 20090727, end: 20090807
  2. NEXAVAR [Suspect]
     Dosage: UNIT DOSE: 200 MG
     Route: 048
     Dates: start: 20090807, end: 20090904

REACTIONS (5)
  - DECREASED APPETITE [None]
  - HEPATIC ENCEPHALOPATHY [None]
  - HYPERKALAEMIA [None]
  - HYPONATRAEMIA [None]
  - PANCREATIC ENZYMES INCREASED [None]
